FAERS Safety Report 20709887 (Version 1)
Quarter: 2022Q2

REPORT INFORMATION
  Report Type: Report from Study
  Country: US (occurrence: US)
  Receive Date: 20220414
  Receipt Date: 20220414
  Transmission Date: 20220721
  Serious: Yes (Other)
  Sender: FDA-Public Use
  Company Number: US-NOVARTISPH-NVSC2022US082970

PATIENT

DRUGS (1)
  1. ENTRESTO [Suspect]
     Active Substance: SACUBITRIL\VALSARTAN
     Indication: Product used for unknown indication
     Dosage: 1 DOSAGE FORM, 24/26 MG
     Route: 065

REACTIONS (4)
  - Dementia Alzheimer^s type [Unknown]
  - Amnesia [Unknown]
  - Confusional state [Unknown]
  - Obsessive thoughts [Unknown]
